FAERS Safety Report 9065808 (Version 1)
Quarter: 2013Q1

REPORT INFORMATION
  Report Type: Report from Study
  Country: US (occurrence: US)
  Receive Date: 20130131
  Receipt Date: 20130131
  Transmission Date: 20140127
  Serious: No
  Sender: FDA-Public Use
  Company Number: US-ABBOTT-12P-163-0967995-00

PATIENT
  Age: 36 Year
  Sex: Female

DRUGS (4)
  1. HUMIRA [Suspect]
     Indication: CROHN^S DISEASE
     Route: 058
     Dates: start: 20120505
  2. IMURAN [Concomitant]
     Indication: CROHN^S DISEASE
     Dosage: 100MG DAILY
  3. ZOLOFT [Concomitant]
     Indication: ANXIETY
     Dosage: 25MG DAILY
  4. VALTREX [Concomitant]
     Indication: HERPES VIRUS INFECTION
     Dosage: 250MG DAILY

REACTIONS (9)
  - Incorrect dose administered [Unknown]
  - Injection site pain [Unknown]
  - Injection site swelling [Unknown]
  - Device malfunction [Unknown]
  - Injection site pain [Not Recovered/Not Resolved]
  - Injection site pain [Not Recovered/Not Resolved]
  - Injection site erythema [Not Recovered/Not Resolved]
  - Injection site bruising [Not Recovered/Not Resolved]
  - Injection site papule [Not Recovered/Not Resolved]
